FAERS Safety Report 16453010 (Version 1)
Quarter: 2019Q2

REPORT INFORMATION
  Report Type: Spontaneous
  Country: US (occurrence: US)
  Receive Date: 20190619
  Receipt Date: 20190619
  Transmission Date: 20190711
  Serious: No
  Sender: FDA-Public Use
  Company Number: US-ROCHE-2206890

PATIENT
  Sex: Female
  Weight: 53.57 kg

DRUGS (5)
  1. ACTEMRA [Suspect]
     Active Substance: TOCILIZUMAB
     Indication: POLYMYALGIA RHEUMATICA
  2. ZOFRAN [Suspect]
     Active Substance: ONDANSETRON HYDROCHLORIDE
     Indication: NAUSEA
     Dosage: ONGOING: YES
     Route: 065
  3. PREDNISONE. [Concomitant]
     Active Substance: PREDNISONE
     Dosage: ONGOING: NO
     Route: 065
     Dates: start: 201805
  4. ACTEMRA [Suspect]
     Active Substance: TOCILIZUMAB
     Indication: TEMPORAL ARTERITIS
     Dosage: ONGOING: YES
     Route: 042
     Dates: start: 20181002
  5. PREDNISONE. [Concomitant]
     Active Substance: PREDNISONE
     Indication: TEMPORAL ARTERITIS
     Dosage: ONGOING: YES
     Route: 065
     Dates: start: 2018

REACTIONS (5)
  - Abdominal pain lower [Not Recovered/Not Resolved]
  - Abdominal pain upper [Not Recovered/Not Resolved]
  - Blood pressure increased [Recovered/Resolved]
  - Nausea [Not Recovered/Not Resolved]
  - Palpitations [Recovered/Resolved]
